FAERS Safety Report 12261254 (Version 1)
Quarter: 2016Q2

REPORT INFORMATION
  Report Type: Spontaneous
  Country: ES (occurrence: ES)
  Receive Date: 20160412
  Receipt Date: 20160412
  Transmission Date: 20160815
  Serious: Yes (Other)
  Sender: FDA-Public Use
  Company Number: ES-ASTRAZENECA-2016SE36361

PATIENT
  Age: 9 Year
  Sex: Female

DRUGS (2)
  1. MEROPENEM. [Suspect]
     Active Substance: MEROPENEM
     Route: 042
  2. VALPROIC ACID. [Interacting]
     Active Substance: VALPROIC ACID

REACTIONS (3)
  - Anticonvulsant drug level decreased [Unknown]
  - Drug interaction [Unknown]
  - Epilepsy [Unknown]
